FAERS Safety Report 8181614-2 (Version None)
Quarter: 2012Q1

REPORT INFORMATION
  Report Type: 
  Country: None (occurrence: None)
  Receive Date: 20120301
  Receipt Date: 20120301
  Transmission Date: 20120608
  Serious: Yes (Hospitalization)
  Sender: FDA-Public Use
  Company Number: None

PATIENT
  Sex: Female
  Weight: 108.1 kg

DRUGS (3)
  1. TAXOL [Suspect]
     Dosage: 1554 MG
  2. CYCLOPHOSPHAMIDE [Suspect]
     Dosage: 9650 MG
  3. DOXORUBICIN HCL [Suspect]
     Dosage: 636 MG

REACTIONS (10)
  - DYSPNOEA [None]
  - BLISTER [None]
  - DIZZINESS [None]
  - PANCYTOPENIA [None]
  - DIARRHOEA [None]
  - PALPITATIONS [None]
  - MUCOSAL INFLAMMATION [None]
  - CHEST DISCOMFORT [None]
  - NEUROPATHY PERIPHERAL [None]
  - ARTHRALGIA [None]
